FAERS Safety Report 14546733 (Version 1)
Quarter: 2018Q1

REPORT INFORMATION
  Report Type: Report from Study
  Country: US (occurrence: US)
  Receive Date: 20180219
  Receipt Date: 20180219
  Transmission Date: 20180509
  Serious: Yes (Other)
  Sender: FDA-Public Use
  Company Number: US-BAYER-2017-249915

PATIENT
  Age: 57 Year
  Sex: Male

DRUGS (2)
  1. NEXAVAR [Suspect]
     Active Substance: SORAFENIB
     Indication: HEPATOCELLULAR CARCINOMA
     Dosage: 200 MG, QD
     Dates: start: 20180122, end: 20180202
  2. NEXAVAR [Suspect]
     Active Substance: SORAFENIB
     Indication: HEPATOCELLULAR CARCINOMA
     Dosage: 400 MG, BID
     Route: 048
     Dates: start: 20171221, end: 20180119

REACTIONS (31)
  - Heart rate decreased [None]
  - Myocardial infarction [None]
  - Pain in extremity [None]
  - Adverse drug reaction [None]
  - Chest discomfort [Recovered/Resolved]
  - Change of bowel habit [None]
  - Alopecia [None]
  - Chest pain [Recovered/Resolved]
  - Fatigue [Not Recovered/Not Resolved]
  - Blood pressure increased [Recovered/Resolved]
  - Abdominal pain upper [Not Recovered/Not Resolved]
  - Chest discomfort [None]
  - Heart rate decreased [Recovered/Resolved]
  - Vomiting [None]
  - Drug dose omission [None]
  - Skin burning sensation [None]
  - Dyspepsia [Recovered/Resolved]
  - Blood pressure increased [None]
  - Liver function test increased [None]
  - Salivary hypersecretion [None]
  - Dyspepsia [None]
  - Dyspnoea [None]
  - Hypoaesthesia [None]
  - Hallucination [None]
  - Hallucinations, mixed [None]
  - Blood pressure increased [None]
  - Abdominal distension [Not Recovered/Not Resolved]
  - Dizziness [Not Recovered/Not Resolved]
  - Exercise tolerance decreased [None]
  - Intentional product use issue [None]
  - Pain of skin [Recovered/Resolved]

NARRATIVE: CASE EVENT DATE: 20171221
